FAERS Safety Report 6293320-X (Version None)
Quarter: 2009Q3

REPORT INFORMATION
  Report Type: 
  Country: None (occurrence: None)
  Receive Date: 20090731
  Receipt Date: 20090727
  Transmission Date: 20100115
  Serious: Yes (Life-Threatening, Other)
  Sender: FDA-Public Use
  Company Number: IT-ELI_LILLY_AND_COMPANY-IT200907000782

PATIENT
  Sex: Female

DRUGS (6)
  1. FORTEO [Suspect]
     Indication: OSTEOPOROTIC FRACTURE
     Dosage: 20 UG, DAILY (1/D)
     Route: 058
     Dates: start: 20090610, end: 20090610
  2. ALLOPURINOL [Concomitant]
     Dosage: 300 MG, UNK
     Route: 048
  3. CARDURA [Concomitant]
     Dosage: 4 MG, UNK
  4. SPIRIVA [Concomitant]
     Dosage: 18 MG, UNK
     Route: 055
  5. SERETIDE [Concomitant]
     Dosage: 275 UG, UNK
     Route: 055
  6. PRELECTAL [Concomitant]
     Dosage: 2.62 MG, UNK
     Route: 048

REACTIONS (1)
  - ANAPHYLACTIC REACTION [None]
